FAERS Safety Report 9781201 (Version 1)
Quarter: 2013Q4

REPORT INFORMATION
  Report Type: Spontaneous
  Country: CN (occurrence: CN)
  Receive Date: 20131224
  Receipt Date: 20131224
  Transmission Date: 20140711
  Serious: Yes (Other)
  Sender: FDA-Public Use
  Company Number: PHHY2013CN147962

PATIENT
  Age: 53 Year
  Sex: Female

DRUGS (1)
  1. ZOMETA [Suspect]
     Indication: METASTASES TO SPINE
     Dosage: 4 MG, EVERY 4 WEEKS
     Route: 042

REACTIONS (2)
  - Compression fracture [Unknown]
  - Back pain [Unknown]
